FAERS Safety Report 9410146 (Version 3)
Quarter: 2015Q4

REPORT INFORMATION
  Report Type: Report from Study
  Country: NL (occurrence: NL)
  Receive Date: 20130719
  Receipt Date: 20151207
  Transmission Date: 20160305
  Serious: Yes (Hospitalization)
  Sender: FDA-Public Use
  Company Number: NL-ACTELION-A-CH2013-85828

PATIENT
  Age: 41 Year
  Sex: Female
  Weight: 79 kg

DRUGS (23)
  1. KETANSERIN. [Concomitant]
     Active Substance: KETANSERIN
     Dosage: 40 MG, UNK
  2. HYDROXYZINE [Concomitant]
     Active Substance: HYDROXYZINE\HYDROXYZINE HYDROCHLORIDE
     Dosage: 10 MG, UNK
  3. SPIRONOLACTON [Concomitant]
     Active Substance: SPIRONOLACTONE
     Dosage: 50 MG, UNK
  4. PCM [Concomitant]
     Dosage: 3000 MG, UNK
  5. ADALAT [Concomitant]
     Active Substance: NIFEDIPINE
  6. METOCLOPRAMIDE. [Concomitant]
     Active Substance: METOCLOPRAMIDE
     Dosage: 30 MG, UNK
  7. CALCICHEW [Concomitant]
     Active Substance: CALCIUM CARBONATE
  8. ENALAPRIL [Concomitant]
     Active Substance: ENALAPRIL
     Dosage: 2.5 MG, UNK
  9. PANTOZOL [Concomitant]
     Active Substance: PANTOPRAZOLE SODIUM
     Dosage: 40 MG, UNK
  10. LISINOPRIL. [Concomitant]
     Active Substance: LISINOPRIL
  11. FLOLAN [Concomitant]
     Active Substance: EPOPROSTENOL SODIUM
     Indication: PULMONARY ARTERIAL HYPERTENSION
  12. CLEMASTINE [Concomitant]
     Active Substance: CLEMASTINE
     Dosage: 4 MG, UNK
  13. PREDNISOLON [Concomitant]
     Active Substance: PREDNISOLONE
     Dosage: 12.5 MG, UNK
  14. ACETYLSALICYLZUUR [Concomitant]
     Active Substance: ASPIRIN
     Dosage: 80 MG, UNK
  15. FLOLAN [Concomitant]
     Active Substance: EPOPROSTENOL SODIUM
     Indication: SKIN ULCER
  16. CALCIUM CARBONATE. [Concomitant]
     Active Substance: CALCIUM CARBONATE
  17. PRAVASTATIN [Concomitant]
     Active Substance: PRAVASTATIN\PRAVASTATIN SODIUM
     Dosage: 20 MG, UNK
  18. RISEDRONIC ACID [Concomitant]
     Active Substance: RISEDRONIC ACID
     Dosage: 35 MG, UNK
  19. TRACLEER [Suspect]
     Active Substance: BOSENTAN
     Indication: SKIN ULCER
     Dosage: 125 MG, BID
     Route: 048
     Dates: start: 2011, end: 20150410
  20. OXYCONTIN [Concomitant]
     Active Substance: OXYCODONE HYDROCHLORIDE
  21. TREPROSTINIL [Concomitant]
     Active Substance: TREPROSTINIL
  22. SILDENAFIL. [Concomitant]
     Active Substance: SILDENAFIL
     Dosage: 60 MG, UNK
  23. BUMETANIDE. [Concomitant]
     Active Substance: BUMETANIDE
     Dosage: 2 MG, QD

REACTIONS (6)
  - Electrolyte imbalance [Unknown]
  - Blood alkaline phosphatase increased [Recovered/Resolved]
  - Cardiac failure [Unknown]
  - Liver function test abnormal [Recovered/Resolved]
  - Aspartate aminotransferase increased [Recovered/Resolved]
  - Alanine aminotransferase increased [Recovered/Resolved]

NARRATIVE: CASE EVENT DATE: 201301
